FAERS Safety Report 4632928-1 (Version None)
Quarter: 2005Q2

REPORT INFORMATION
  Report Type: 
  Country: None (occurrence: None)
  Receive Date: 20050411
  Receipt Date: 20050411
  Transmission Date: 20051028
  Serious: Yes (Other)
  Sender: FDA-Public Use
  Company Number: None

PATIENT
  Sex: Female
  Weight: 58.514 kg

DRUGS (1)
  1. AVELOX [Suspect]
     Indication: BRONCHITIS
     Dosage: 1 A DAY FIVE DAYS ORAL
     Route: 048
     Dates: start: 20050404, end: 20050406

REACTIONS (13)
  - ANXIETY [None]
  - BURNING SENSATION [None]
  - CHEST DISCOMFORT [None]
  - DIZZINESS [None]
  - DRY MOUTH [None]
  - DYSGEUSIA [None]
  - EYELID DISORDER [None]
  - FLUSHING [None]
  - HEART RATE INCREASED [None]
  - MALAISE [None]
  - MUSCLE TWITCHING [None]
  - NASAL DRYNESS [None]
  - TREMOR [None]
